FAERS Safety Report 8036315-8 (Version None)
Quarter: 2012Q1

REPORT INFORMATION
  Report Type: 
  Country: None (occurrence: None)
  Receive Date: 20120111
  Receipt Date: 20110919
  Transmission Date: 20120608
  Serious: No
  Sender: FDA-Public Use
  Company Number: US-GLAXOSMITHKLINE-A0945166A

PATIENT
  Age: 79 Year
  Sex: Male

DRUGS (6)
  1. JALYN [Suspect]
     Indication: BENIGN PROSTATIC HYPERPLASIA
     Dosage: 1CAP PER DAY
     Route: 048
     Dates: start: 20110917
  2. VITAMIN B COMPLEX CAP [Concomitant]
  3. PRILOSEC [Concomitant]
  4. ALDACTAZIDE [Concomitant]
  5. TOPROL-XL [Concomitant]
  6. NAPROSYN [Concomitant]

REACTIONS (6)
  - SOMNOLENCE [None]
  - INSOMNIA [None]
  - ASTHENIA [None]
  - BACK PAIN [None]
  - DIARRHOEA [None]
  - DIZZINESS [None]
